FAERS Safety Report 11628514 (Version 3)
Quarter: 2015Q4

REPORT INFORMATION
  Report Type: Spontaneous
  Country: US (occurrence: US)
  Receive Date: 20151014
  Receipt Date: 20151124
  Transmission Date: 20160304
  Serious: Yes (Other)
  Sender: FDA-Public Use
  Company Number: US-BRACCO-012767

PATIENT
  Age: 55 Year
  Sex: Male

DRUGS (4)
  1. XYLOCAINE [Suspect]
     Active Substance: LIDOCAINE HYDROCHLORIDE
     Indication: RADICULOPATHY
     Dates: start: 20150924, end: 20150924
  2. DEPO-MEDROL [Suspect]
     Active Substance: METHYLPREDNISOLONE ACETATE
     Indication: RADICULOPATHY
     Dates: start: 20150924, end: 20150924
  3. BUPIVACAINE [Suspect]
     Active Substance: BUPIVACAINE
     Indication: RADICULOPATHY
     Dates: start: 20150924, end: 20150924
  4. ISOVUE-M [Suspect]
     Active Substance: IOPAMIDOL
     Indication: RADICULOPATHY
     Route: 008
     Dates: start: 20150924, end: 20150924

REACTIONS (1)
  - Pseudomonas infection [Recovered/Resolved]

NARRATIVE: CASE EVENT DATE: 20150928
